FAERS Safety Report 5593583-X (Version None)
Quarter: 2008Q1

REPORT INFORMATION
  Report Type: 
  Country: None (occurrence: None)
  Receive Date: 20080116
  Receipt Date: 20080108
  Transmission Date: 20080703
  Serious: Yes (Other)
  Sender: FDA-Public Use
  Company Number: US-ASTRAZENECA-2008UW00595

PATIENT

DRUGS (4)
  1. SEROQUEL [Suspect]
     Indication: DELIRIUM
     Route: 048
     Dates: start: 20071213
  2. SEROQUEL [Suspect]
     Route: 048
     Dates: start: 20071214
  3. SEROQUEL [Suspect]
     Route: 048
     Dates: start: 20071216
  4. HALOPERIDOL [Suspect]
     Indication: DELIRIUM
     Route: 042

REACTIONS (2)
  - CHOLESTASIS [None]
  - GASTROINTESTINAL DISORDER [None]
